FAERS Safety Report 9894925 (Version 2)
Quarter: 2014Q1

REPORT INFORMATION
  Report Type: Report from Study
  Country: US (occurrence: US)
  Receive Date: 20140213
  Receipt Date: 20140213
  Transmission Date: 20141002
  Serious: Yes (Hospitalization)
  Sender: FDA-Public Use
  Company Number: PHEH2013US012581

PATIENT
  Age: 32 Year
  Sex: Female

DRUGS (9)
  1. EXTAVIA [Suspect]
     Indication: MULTIPLE SCLEROSIS
     Dosage: UNK UKN, UNK
     Route: 058
  2. EXTAVIA [Suspect]
     Dosage: 0.25 MG, EVERY OTHER DAY
     Route: 058
     Dates: start: 20130515
  3. EXTAVIA [Suspect]
     Dosage: 0.3 MG, EVERY OTHER DAY
     Route: 058
  4. EXTAVIA [Suspect]
     Dosage: 0.062 MG, EVERY OTHER DAY
     Route: 058
     Dates: start: 20140117
  5. EXTAVIA [Suspect]
     Dosage: 0.3 MG, QOD
  6. IBUPROFEN [Concomitant]
     Indication: PAIN
     Dosage: UNK UKN, UNK (AS NEEDED)
     Route: 048
  7. PROPRANOLOL [Concomitant]
     Indication: TREMOR
     Dosage: UNK UKN, DAILY
     Route: 048
  8. OXYBUTYNIN [Concomitant]
     Indication: AUTOMATIC BLADDER
     Dosage: UNK UKN, DAILY
     Route: 048
  9. GABAPENTIN [Concomitant]
     Indication: NEURALGIA
     Dosage: UNK UKN, DAILY
     Route: 048

REACTIONS (9)
  - Multiple sclerosis [Not Recovered/Not Resolved]
  - Tremor [Not Recovered/Not Resolved]
  - Paraesthesia [Not Recovered/Not Resolved]
  - Headache [Not Recovered/Not Resolved]
  - Urinary incontinence [Not Recovered/Not Resolved]
  - Pruritus [Not Recovered/Not Resolved]
  - Insomnia [Not Recovered/Not Resolved]
  - Injection site bruising [Not Recovered/Not Resolved]
  - Injection site erythema [Recovered/Resolved]
